FAERS Safety Report 4334182-7 (Version None)
Quarter: 2004Q2

REPORT INFORMATION
  Report Type: 
  Country: None (occurrence: None)
  Receive Date: 20040402
  Receipt Date: 20040326
  Transmission Date: 20050107
  Serious: Yes (Other)
  Sender: FDA-Public Use
  Company Number: STA-AE-04-MTX-126

PATIENT
  Age: 49 Year
  Sex: Female

DRUGS (8)
  1. METHOTREXATE [Suspect]
     Indication: PSORIATIC ARTHROPATHY
     Dosage: 7.5 MG 1X PER 1 WK, ORAL
     Route: 048
  2. OMEPRAZOLE [Suspect]
     Dosage: 10 MG 1X PER 1 DAY
  3. ATORVASTATIN [Concomitant]
  4. LEVOTHYROXINE SODIUM [Concomitant]
  5. PROPAMIDINE [Concomitant]
  6. BROMAZEPAM [Concomitant]
  7. PROPRANOLOL [Concomitant]
  8. FOLIC ACID [Concomitant]

REACTIONS (6)
  - ALEXIA [None]
  - DRUG INTERACTION [None]
  - PANCYTOPENIA [None]
  - PROGRESSIVE MULTIFOCAL LEUKOENCEPHALOPATHY [None]
  - RENAL FUNCTION TEST ABNORMAL [None]
  - VISION BLURRED [None]
